FAERS Safety Report 17897331 (Version 3)
Quarter: 2021Q1

REPORT INFORMATION
  Report Type: Spontaneous
  Country: US (occurrence: US)
  Receive Date: 20200615
  Receipt Date: 20210104
  Transmission Date: 20210419
  Serious: Yes (Other)
  Sender: FDA-Public Use
  Company Number: US-PFIZER INC-2020229456

PATIENT
  Age: 57 Year
  Sex: Female

DRUGS (1)
  1. XELJANZ XR [Suspect]
     Active Substance: TOFACITINIB CITRATE
     Indication: RHEUMATOID ARTHRITIS
     Dosage: 11 MG, 1X/DAY
     Route: 048
     Dates: start: 20200605

REACTIONS (7)
  - Basal cell carcinoma [Unknown]
  - Arthritis [Unknown]
  - Depressed mood [Unknown]
  - Discouragement [Unknown]
  - Neuropathy peripheral [Not Recovered/Not Resolved]
  - Arthralgia [Unknown]
  - Periarthritis [Unknown]

NARRATIVE: CASE EVENT DATE: 2020
